APPROVED DRUG PRODUCT: METROGEL
Active Ingredient: METRONIDAZOLE
Strength: 1%
Dosage Form/Route: GEL;TOPICAL
Application: N021789 | Product #001 | TE Code: AB
Applicant: GALDERMA LABORATORIES LP
Approved: Jun 30, 2005 | RLD: Yes | RS: Yes | Type: RX